FAERS Safety Report 4497387-0 (Version None)
Quarter: 2004Q4

REPORT INFORMATION
  Report Type: 
  Country: None (occurrence: None)
  Receive Date: 20041110
  Receipt Date: 20041101
  Transmission Date: 20050328
  Serious: Yes (Other)
  Sender: FDA-Public Use
  Company Number: 200418414US

PATIENT
  Sex: Female

DRUGS (1)
  1. CARAC [Suspect]
     Indication: PRECANCEROUS SKIN LESION
     Dosage: DOSE: NOT PROVIDED
     Route: 061

REACTIONS (4)
  - ABASIA [None]
  - CONVULSION [None]
  - DYSPNOEA [None]
  - UNEVALUABLE EVENT [None]
